FAERS Safety Report 7961273-1 (Version None)
Quarter: 2011Q4

REPORT INFORMATION
  Report Type: 
  Country: None (occurrence: None)
  Receive Date: 20111207
  Receipt Date: 20111205
  Transmission Date: 20120403
  Serious: No
  Sender: FDA-Public Use
  Company Number: PHEH2011US009224

PATIENT
  Sex: Female

DRUGS (11)
  1. TASIGNA [Suspect]
     Indication: CHRONIC MYELOID LEUKAEMIA
     Dosage: 300 MG, BID
     Route: 048
     Dates: start: 20111018, end: 20111101
  2. NADOLOL [Concomitant]
  3. OMEPRAZOLE [Concomitant]
  4. PHENERGAN [Concomitant]
  5. ALLOPURINOL [Concomitant]
  6. ZOLOFT [Concomitant]
  7. MULTI-VITAMINS [Concomitant]
  8. ULTRAM [Concomitant]
  9. FLEXERIL [Concomitant]
  10. LOVAZA [Concomitant]
  11. DENAVIR [Concomitant]

REACTIONS (4)
  - DYSPNOEA [None]
  - MIGRAINE [None]
  - CHEST PAIN [None]
  - NIPPLE PAIN [None]
